FAERS Safety Report 4945102-6 (Version None)
Quarter: 2006Q1

REPORT INFORMATION
  Report Type: 
  Country: None (occurrence: None)
  Receive Date: 20060314
  Receipt Date: 20060314
  Transmission Date: 20060701
  Serious: No
  Sender: FDA-Public Use
  Company Number: None

PATIENT
  Sex: Female

DRUGS (5)
  1. OXYCONTIN [Suspect]
     Indication: LUMBAR SPINAL STENOSIS
     Dosage: 40 MG 2 PO Q 12 H ORAL
     Route: 048
     Dates: start: 20040101
  2. NEURONTIN [Concomitant]
  3. OXY IR [Concomitant]
  4. XANAX [Concomitant]
  5. ZONEGRAN [Concomitant]

REACTIONS (2)
  - HEADACHE [None]
  - PHARMACEUTICAL PRODUCT COMPLAINT [None]
